FAERS Safety Report 9729973 (Version 1)
Quarter: 2013Q4

REPORT INFORMATION
  Report Type: Spontaneous
  Country: GB (occurrence: GB)
  Receive Date: 20131204
  Receipt Date: 20131204
  Transmission Date: 20140711
  Serious: Yes (Hospitalization)
  Sender: FDA-Public Use
  Company Number: GB-ABBVIE-13P-167-1173248-00

PATIENT
  Age: 40 Year
  Sex: Female

DRUGS (2)
  1. LOPINAVIR/RITONAVIR [Suspect]
     Indication: HIV INFECTION
     Dosage: 400/100 TWICE DAILY
  2. LOPINAVIR/RITONAVIR [Suspect]
     Dosage: 800/200 ONCE DAILY

REACTIONS (2)
  - Encephalitis viral [Recovered/Resolved]
  - Retroviral rebound syndrome [Recovered/Resolved]
